FAERS Safety Report 4971379-7 (Version None)
Quarter: 2006Q2

REPORT INFORMATION
  Report Type: 
  Country: None (occurrence: None)
  Receive Date: 20060406
  Receipt Date: 20060324
  Transmission Date: 20061013
  Serious: Yes (Death)
  Sender: FDA-Public Use
  Company Number: RU200603006346

PATIENT
  Age: 38 Year
  Sex: Male

DRUGS (1)
  1. ZYPREXA [Suspect]
     Indication: SCHIZOPHRENIA
     Dosage: 10 MG, DAILY (1/D), ORAL
     Route: 048
     Dates: start: 20030101, end: 20060201

REACTIONS (1)
  - CIRCULATORY COLLAPSE [None]
